FAERS Safety Report 18179816 (Version 2)
Quarter: 2020Q4

REPORT INFORMATION
  Report Type: Spontaneous
  Country: DE (occurrence: DE)
  Receive Date: 20200821
  Receipt Date: 20201211
  Transmission Date: 20210113
  Serious: Yes (Life-Threatening, Hospitalization, Other)
  Sender: FDA-Public Use
  Company Number: NVSC2020DE226417

PATIENT
  Sex: Female
  Weight: 78.6 kg

DRUGS (11)
  1. BIOLECTRA [Concomitant]
     Indication: PRODUCT USED FOR UNKNOWN INDICATION
     Route: 065
  2. VALSARTAN - 1 A PHARMA 160 MG FILMTABLETTEN [Suspect]
     Active Substance: VALSARTAN
     Dosage: 160 MG
     Route: 065
     Dates: start: 201805, end: 201807
  3. SELENIUM [Concomitant]
     Active Substance: SELENIUM
     Indication: PRODUCT USED FOR UNKNOWN INDICATION
     Route: 065
  4. VALSARTAN - 1 A PHARMA 160 MG FILMTABLETTEN [Suspect]
     Active Substance: VALSARTAN
     Indication: HYPERTENSION
     Dosage: UNK
     Route: 065
     Dates: start: 20140801, end: 20190930
  5. VALSARTAN - 1 A PHARMA 160 MG FILMTABLETTEN [Suspect]
     Active Substance: VALSARTAN
     Dosage: 160 MG
     Route: 065
     Dates: start: 201611, end: 201702
  6. VALSARTAN - 1 A PHARMA 160 MG FILMTABLETTEN [Suspect]
     Active Substance: VALSARTAN
     Dosage: 160 MG
     Route: 065
     Dates: start: 201409, end: 201501
  7. VIT D [Concomitant]
     Active Substance: VITAMIN D NOS
     Indication: PRODUCT USED FOR UNKNOWN INDICATION
     Route: 065
  8. VALSACOR [Concomitant]
     Active Substance: VALSARTAN
     Indication: PRODUCT USED FOR UNKNOWN INDICATION
     Dosage: 16 MG, QD (ONCE DAILY IN THE MORNING)
     Route: 065
  9. LERCANIDIPINE [Concomitant]
     Active Substance: LERCANIDIPINE
     Indication: PRODUCT USED FOR UNKNOWN INDICATION
     Dosage: 20 MG (HALF OF A DOSE ONCE DAILY IN THE MORNING)
     Route: 065
  10. VALSARTAN. [Suspect]
     Active Substance: VALSARTAN
     Indication: HYPERTENSION
     Dosage: 160 MG, QD
     Route: 065
     Dates: start: 20141015, end: 2018
  11. VALSARTAN - 1 A PHARMA 160 MG FILMTABLETTEN [Suspect]
     Active Substance: VALSARTAN
     Dosage: 160 MG
     Route: 065
     Dates: start: 201708, end: 201803

REACTIONS (4)
  - Intraductal proliferative breast lesion [Not Recovered/Not Resolved]
  - Meningioma [Unknown]
  - Product contamination [Unknown]
  - Breast cyst [Unknown]

NARRATIVE: CASE EVENT DATE: 2016
